FAERS Safety Report 18379361 (Version 1)
Quarter: 2020Q4

REPORT INFORMATION
  Report Type: Spontaneous
  Country: CN (occurrence: CN)
  Receive Date: 20201014
  Receipt Date: 20201014
  Transmission Date: 20210114
  Serious: Yes (Life-Threatening, Other)
  Sender: FDA-Public Use
  Company Number: CN-LUPIN PHARMACEUTICALS INC.-2020-07358

PATIENT

DRUGS (2)
  1. MOXIFLOXACIN. [Suspect]
     Active Substance: MOXIFLOXACIN
     Indication: LISTERIOSIS
     Dosage: UNK
     Route: 064
  2. CEFMETAZOLE [Suspect]
     Active Substance: CEFMETAZOLE
     Indication: LISTERIOSIS
     Dosage: UNK
     Route: 064

REACTIONS (16)
  - Premature baby [Unknown]
  - Foetal distress syndrome [Unknown]
  - Central nervous system infection [Unknown]
  - Disseminated intravascular coagulation [Unknown]
  - Foetal hypokinesia [Unknown]
  - Dyspnoea [Unknown]
  - Foetal exposure during pregnancy [Unknown]
  - Low birth weight baby [Unknown]
  - Intrauterine infection [Unknown]
  - Sepsis [Unknown]
  - Meningitis [Unknown]
  - Hypoglycaemia [Unknown]
  - Myocardial infarction [Unknown]
  - Rash [Unknown]
  - Thrombocytopenia [Unknown]
  - Listeriosis [Unknown]
